FAERS Safety Report 11100612 (Version 2)
Quarter: 2015Q2

REPORT INFORMATION
  Report Type: Report from Study
  Country: US (occurrence: US)
  Receive Date: 20150508
  Receipt Date: 20150515
  Transmission Date: 20150821
  Serious: Yes (Other)
  Sender: FDA-Public Use
  Company Number: US-ASTELLAS-2015US015708

PATIENT
  Sex: Female

DRUGS (5)
  1. ERLOTINIB [Suspect]
     Active Substance: ERLOTINIB
     Route: 048
  2. SPIRONOLACTONE. [Concomitant]
     Active Substance: SPIRONOLACTONE
     Indication: DIURETIC THERAPY
     Dosage: UNK UNK, UNKNOWN FREQ.
     Route: 065
  3. MULTAQ [Concomitant]
     Active Substance: DRONEDARONE
     Indication: ARRHYTHMIA
     Dosage: UNK UNK, UNKNOWN FREQ.
     Route: 065
  4. ERLOTINIB [Suspect]
     Active Substance: ERLOTINIB
     Indication: SMALL CELL LUNG CANCER
     Dosage: 150 MG, TWICE WEEKLY (MONDAYS AND THURSDAYS)
     Route: 048
  5. ERLOTINIB [Suspect]
     Active Substance: ERLOTINIB
     Route: 048
     Dates: start: 201410

REACTIONS (16)
  - Fatigue [Not Recovered/Not Resolved]
  - Immunodeficiency [Unknown]
  - Functional gastrointestinal disorder [Unknown]
  - Tremor [Not Recovered/Not Resolved]
  - Blindness [Unknown]
  - Pulmonary hypertension [Recovered/Resolved]
  - Chest pain [Recovered/Resolved]
  - Mental disorder [Unknown]
  - Disturbance in attention [Unknown]
  - Vision blurred [Recovered/Resolved]
  - Atrial flutter [Unknown]
  - Swelling [Unknown]
  - Rash [Unknown]
  - Dyspnoea [Not Recovered/Not Resolved]
  - Poisoning [Unknown]
  - Amnesia [Unknown]
